FAERS Safety Report 9518163 (Version 1)
Quarter: 2013Q1

REPORT INFORMATION
  Report Type: Spontaneous
  Country: US (occurrence: None)
  Receive Date: 20130305
  Receipt Date: 20130305
  Transmission Date: 20140127
  Serious: Yes (Other)
  Sender: FDA-Public Use
  Company Number: 163-21880-12121208

PATIENT
  Sex: 0

DRUGS (3)
  1. REVLIMID (LENALIDOMIDE) (CAPSULES) [Suspect]
     Indication: CHRONIC LYMPHOCYTIC LEUKAEMIA
     Dosage: 2.5 MG, ON D8-28 OF C1-6, PO
     Route: 048
  2. RITUXIMAB (RITUXIMAB) [Suspect]
     Indication: CHRONIC LYMPHOCYTIC LEUKAEMIA
     Dosage: 375 MG/M2, CYCLE (C) 1, SPLIT OVER DAY (D) 1+2)
  3. FLUDARABINE (FLUDARABINE) [Suspect]
     Indication: CHRONIC LYMPHOCYTIC LEUKAEMIA
     Dosage: 25 MG/M2, D1, 2 AND 3

REACTIONS (7)
  - Rash [None]
  - Infection [None]
  - Fatigue [None]
  - Anaemia [None]
  - Neutropenia [None]
  - Febrile neutropenia [None]
  - Thrombocytopenia [None]
